FAERS Safety Report 24823221 (Version 1)
Quarter: 2025Q1

REPORT INFORMATION
  Report Type: Spontaneous
  Country: GB (occurrence: GB)
  Receive Date: 20250109
  Receipt Date: 20250109
  Transmission Date: 20250409
  Serious: Yes (Other)
  Sender: TEVA
  Company Number: None

PATIENT
  Age: 37 Year
  Sex: Male
  Weight: 78 kg

DRUGS (1)
  1. LEVOTHYROXINE [Suspect]
     Active Substance: LEVOTHYROXINE
     Indication: Hypothyroidism
     Dosage: IN THE MORNING: DURATION: 08 DAYS
     Route: 065
     Dates: start: 20240819, end: 20240826

REACTIONS (5)
  - Discomfort [Recovered/Resolved]
  - Poor quality sleep [Recovered/Resolved]
  - Head discomfort [Recovered/Resolved]
  - Headache [Recovered/Resolved]
  - Irritability [Recovered/Resolved]

NARRATIVE: CASE EVENT DATE: 20240819
